FAERS Safety Report 9387720 (Version 3)
Quarter: 2013Q3

REPORT INFORMATION
  Report Type: Report from Study
  Country: JP (occurrence: JP)
  Receive Date: 20130708
  Receipt Date: 20130801
  Transmission Date: 20140515
  Serious: Yes (Hospitalization)
  Sender: FDA-Public Use
  Company Number: JP-ASTELLAS-2013US006970

PATIENT
  Age: 79 Year
  Sex: Female

DRUGS (14)
  1. ERLOTINIB TABLET [Suspect]
     Indication: LUNG ADENOCARCINOMA
     Dosage: 150 MG, UID/QD
     Route: 048
     Dates: start: 20110420, end: 20130626
  2. RESTAMIN                           /00000401/ [Concomitant]
     Indication: PRODUCT USED FOR UNKNOWN INDICATION
     Dosage: DOSAGE IS UNCERTAIN
     Route: 003
     Dates: start: 20130515
  3. CERCINE [Concomitant]
     Indication: INSOMNIA
     Dosage: 2 MG, UID/QD
     Route: 048
  4. BENET [Concomitant]
     Indication: OSTEOPOROSIS
     Dosage: 17.5 MG, WEEKLY
     Route: 048
  5. HIRUDOID                           /00723701/ [Concomitant]
     Indication: DRY SKIN
     Dosage: UNK
     Route: 062
     Dates: start: 20110506
  6. SANCOBA [Concomitant]
     Indication: VISION BLURRED
     Dosage: 3 UNK, UID/QD
     Route: 047
     Dates: start: 20110525
  7. TAKEPRON [Concomitant]
     Indication: DYSPEPSIA
     Dosage: 15 MG, UID/QD
     Route: 048
     Dates: start: 20111026
  8. BECLOMETASONE DIPROPIONATE [Concomitant]
     Indication: NASAL DRYNESS
     Dosage: UNK
     Route: 045
     Dates: start: 20111027
  9. BLOPRESS [Concomitant]
     Indication: HYPERTENSION
     Dosage: 4 MG, UID/QD
     Route: 048
     Dates: start: 20111116
  10. PREDNISOLONE [Concomitant]
     Indication: MYALGIA
     Dosage: 5 MG, UID/QD
     Route: 048
     Dates: start: 20120320
  11. REBAMIPIDE [Concomitant]
     Indication: GASTRITIS
     Dosage: 100 MG, TID
     Route: 048
     Dates: start: 20120404
  12. SHAKUYAKUKANZOTO [Concomitant]
     Indication: MUSCLE SPASMS
     Dosage: MYOSPASMUS AND ONE SAC
     Route: 048
     Dates: start: 20120502
  13. CRESTOR [Concomitant]
     Indication: HYPERLIPIDAEMIA
     Dosage: 2.5 MG, WEEKLY
     Route: 048
     Dates: start: 20130130
  14. ALLEGRA [Concomitant]
     Indication: PRURITUS
     Dosage: 2.5 MG, 2 IN 1 WK
     Route: 048
     Dates: start: 20130515

REACTIONS (2)
  - Bile duct stenosis [Recovering/Resolving]
  - Hepatic function abnormal [Recovering/Resolving]
